FAERS Safety Report 4556028-4 (Version None)
Quarter: 2005Q1

REPORT INFORMATION
  Report Type: 
  Country: None (occurrence: None)
  Receive Date: 20050118
  Receipt Date: 20040916
  Transmission Date: 20050727
  Serious: Yes (Hospitalization)
  Sender: FDA-Public Use
  Company Number: A03200403177

PATIENT
  Age: 71 Year
  Sex: Male

DRUGS (2)
  1. UROXATRAL [Suspect]
     Indication: URINARY RETENTION
     Dosage: 10 MG OD ORAL
     Route: 048
     Dates: start: 20040902, end: 20040910
  2. MULTI-VITAMINS [Concomitant]

REACTIONS (3)
  - DEPRESSION [None]
  - FATIGUE [None]
  - HYPOTENSION [None]
